FAERS Safety Report 6229904-4 (Version None)
Quarter: 2009Q2

REPORT INFORMATION
  Report Type: 
  Country: None (occurrence: None)
  Receive Date: 20090615
  Receipt Date: 20090401
  Transmission Date: 20091009
  Serious: Yes (Hospitalization, Other)
  Sender: FDA-Public Use
  Company Number: TR-ELI_LILLY_AND_COMPANY-TR200906002559

PATIENT
  Age: 66 Year
  Sex: Female

DRUGS (3)
  1. HUMULIN R [Suspect]
     Indication: DIABETES MELLITUS
     Dosage: 10 IU, EACH MORNING
     Route: 058
  2. HUMULIN R [Suspect]
     Dosage: 10 IU, DAILY (1/D)
     Route: 058
  3. HUMULIN R [Suspect]
     Dosage: 20 IU, EACH EVENING
     Route: 058

REACTIONS (1)
  - CEREBROVASCULAR ACCIDENT [None]
